FAERS Safety Report 24165197 (Version 1)
Quarter: 2024Q3

REPORT INFORMATION
  Report Type: Spontaneous
  Country: US (occurrence: US)
  Receive Date: 20240802
  Receipt Date: 20240802
  Transmission Date: 20241016
  Serious: Yes (Other)
  Sender: BRISTOL MYERS SQUIBB
  Company Number: US-BRISTOL-MYERS SQUIBB COMPANY-2024-120362

PATIENT
  Age: 79 Year
  Sex: Male
  Weight: 67.13 kg

DRUGS (9)
  1. REVLIMID [Suspect]
     Active Substance: LENALIDOMIDE
     Indication: Plasma cell myeloma
     Dosage: TAKE 1 CAPSULE BY MOUTH DAILY FOR 21 DAYS THEN 7 DAYS OFF
     Route: 048
     Dates: start: 20240711
  2. REVLIMID [Suspect]
     Active Substance: LENALIDOMIDE
     Route: 048
  3. ACYCLOVIR [Concomitant]
     Active Substance: ACYCLOVIR
  4. ASPIRIN [Concomitant]
     Active Substance: ASPIRIN
  5. DAILY VITE [ASCORBIC ACID;COLECALCIFEROL;CYANOCOBALAMIN;FOLIC ACID;NIC [Concomitant]
  6. VITAMIN D3 [Concomitant]
     Active Substance: CHOLECALCIFEROL
  7. BIFIDOBACTERIUM SPP.\LACTOBACILLUS ACIDOPHILUS [Concomitant]
     Active Substance: BIFIDOBACTERIUM SPP.\LACTOBACILLUS ACIDOPHILUS
  8. CALCIUM [Concomitant]
     Active Substance: CALCIUM
  9. CRANBERRY [CARTHAMUS TINCTORIUS;VACCINIUM MACROCARPON] [Concomitant]

REACTIONS (2)
  - Neutropenia [Recovered/Resolved]
  - Off label use [Unknown]

NARRATIVE: CASE EVENT DATE: 20240712
